FAERS Safety Report 8976578 (Version 1)
Quarter: 2012Q4

REPORT INFORMATION
  Report Type: 
  Country: US (occurrence: US)
  Receive Date: 20121219
  Receipt Date: 20121219
  Transmission Date: 20130627
  Serious: No
  Sender: FDA-Public Use
  Company Number: US-AMGEN-USASP2012061754

PATIENT
  Age: 64 Year
  Sex: Female

DRUGS (2)
  1. PROLIA [Suspect]
     Indication: OSTEOPOROSIS
     Dosage: UNK
  2. CORTICOSTEROIDS [Concomitant]
     Indication: SARCOIDOSIS
     Dosage: UNK

REACTIONS (2)
  - Bone pain [Unknown]
  - Paraesthesia oral [Unknown]
